FAERS Safety Report 10052557 (Version 5)
Quarter: 2014Q4

REPORT INFORMATION
  Report Type: Spontaneous
  Country: US (occurrence: US)
  Receive Date: 20140402
  Receipt Date: 20141024
  Transmission Date: 20150528
  Serious: Yes (Hospitalization)
  Sender: FDA-Public Use
  Company Number: US-BAYER-2014-049389

PATIENT
  Age: 18 Year
  Sex: Female
  Weight: 82 kg

DRUGS (1)
  1. MIRENA [Suspect]
     Active Substance: LEVONORGESTREL
     Indication: CONTRACEPTION
     Dosage: 20 MCG/24HR, CONT
     Route: 015
     Dates: start: 20101202, end: 20130523

REACTIONS (10)
  - Premature labour [None]
  - Injury [None]
  - Depression [None]
  - Premature delivery [None]
  - Pain [None]
  - Pregnancy with contraceptive device [None]
  - Anxiety [None]
  - Uterine perforation [None]
  - Drug ineffective [None]
  - Emotional distress [None]

NARRATIVE: CASE EVENT DATE: 201012
